FAERS Safety Report 6568480-3 (Version None)
Quarter: 2010Q1

REPORT INFORMATION
  Report Type: 
  Country: None (occurrence: None)
  Receive Date: 20100203
  Receipt Date: 20100125
  Transmission Date: 20100710
  Serious: Yes (Hospitalization)
  Sender: FDA-Public Use
  Company Number: B0613400A

PATIENT
  Sex: Female

DRUGS (6)
  1. DILATREND [Suspect]
     Route: 048
  2. ALDACTONE [Suspect]
     Indication: ESSENTIAL HYPERTENSION
     Dosage: 100MG PER DAY
     Route: 048
  3. TRITEC [Suspect]
     Route: 048
  4. ASPIRIN [Concomitant]
  5. NEXIUM [Concomitant]
  6. ZOCOR [Concomitant]

REACTIONS (3)
  - ABDOMINAL PAIN UPPER [None]
  - ORTHOSTATIC HYPOTENSION [None]
  - VERTIGO [None]
